FAERS Safety Report 21073683 (Version 3)
Quarter: 2022Q3

REPORT INFORMATION
  Report Type: Spontaneous
  Country: JP (occurrence: JP)
  Receive Date: 20220713
  Receipt Date: 20220819
  Transmission Date: 20221027
  Serious: Yes (Other)
  Sender: FDA-Public Use
  Company Number: JP-ABBVIE-22K-087-4456814-00

PATIENT
  Age: 70 Year

DRUGS (11)
  1. LEVOBUPIVACAINE HYDROCHLORIDE [Suspect]
     Active Substance: LEVOBUPIVACAINE HYDROCHLORIDE
     Indication: Local anaesthesia
     Dosage: 0.75% INJ. 75MG/10ML
     Route: 061
     Dates: start: 20220614, end: 20220614
  2. SOYBEAN OIL [Concomitant]
     Active Substance: SOYBEAN OIL
     Indication: Product used for unknown indication
     Dosage: SOYABEAN OIL
     Route: 041
     Dates: start: 20220614, end: 20220614
  3. DEXMEDETOMIDINE HYDROCHLORIDE [Concomitant]
     Active Substance: DEXMEDETOMIDINE HYDROCHLORIDE
     Indication: Product used for unknown indication
     Dosage: 0.6 G/KG/H,
     Route: 041
     Dates: start: 20220614, end: 20220614
  4. CALCIUM GLUCONATE\DEXTROSE\MAGNESIUM CHLORIDE\POTASSIUM CHLORIDE\SODIU [Concomitant]
     Active Substance: CALCIUM GLUCONATE\DEXTROSE\MAGNESIUM CHLORIDE\POTASSIUM CHLORIDE\SODIUM ACETATE\SODIUM CHLORIDE\TRIS
     Indication: Product used for unknown indication
  5. MIDAZOLAM [Concomitant]
     Active Substance: MIDAZOLAM
     Indication: Product used for unknown indication
     Route: 042
     Dates: start: 20220614, end: 20220614
  6. LIDOCAINE [Concomitant]
     Active Substance: LIDOCAINE
     Indication: Product used for unknown indication
     Route: 053
     Dates: start: 20220614, end: 20220614
  7. CALCIUM CHLORIDE\POTASSIUM CHLORIDE\SODIUM ACETATE [Concomitant]
     Active Substance: CALCIUM CHLORIDE\POTASSIUM CHLORIDE\SODIUM ACETATE
     Indication: Product used for unknown indication
     Dosage: SOLUTION
     Route: 041
     Dates: start: 20220614, end: 20220614
  8. OMEPRAZOLE [Concomitant]
     Active Substance: OMEPRAZOLE
     Indication: Product used for unknown indication
     Route: 042
     Dates: start: 20220614, end: 20220614
  9. SOLDEM 3A [Concomitant]
     Active Substance: CARBOHYDRATES\POTASSIUM CHLORIDE\SODIUM CHLORIDE\SODIUM LACTATE
     Indication: Product used for unknown indication
     Route: 041
     Dates: start: 20220614, end: 20220615
  10. EZETIMIBE [Concomitant]
     Active Substance: EZETIMIBE
     Indication: Product used for unknown indication
     Route: 048
  11. CODEINE PHOSPHATE [Concomitant]
     Active Substance: CODEINE PHOSPHATE
     Indication: Product used for unknown indication
     Route: 048

REACTIONS (2)
  - Toxicity to various agents [Unknown]
  - Toxicity to various agents [Unknown]

NARRATIVE: CASE EVENT DATE: 20220614
